FAERS Safety Report 10143017 (Version 1)
Quarter: 2014Q2

REPORT INFORMATION
  Report Type: Spontaneous
  Country: CA (occurrence: CA)
  Receive Date: 20140430
  Receipt Date: 20140430
  Transmission Date: 20141212
  Serious: Yes (Other)
  Sender: FDA-Public Use
  Company Number: CA-PFIZER INC-2014117704

PATIENT
  Age: 33 Year
  Sex: Female
  Weight: 72 kg

DRUGS (2)
  1. VARENICLINE TARTRATE [Suspect]
     Dosage: 1.0 MG, 2X/DAY
     Route: 048
  2. ISOTRETINOIN [Suspect]
     Dosage: 40.0 MG, 1X/DAY
     Route: 048

REACTIONS (4)
  - Chorioretinopathy [Not Recovered/Not Resolved]
  - Retinal detachment [Not Recovered/Not Resolved]
  - Photopsia [Not Recovered/Not Resolved]
  - Visual impairment [Not Recovered/Not Resolved]
